FAERS Safety Report 9786638 (Version 2)
Quarter: 2014Q1

REPORT INFORMATION
  Report Type: Spontaneous
  Country: US (occurrence: US)
  Receive Date: 20131227
  Receipt Date: 20140124
  Transmission Date: 20141002
  Serious: Yes (Other)
  Sender: FDA-Public Use
  Company Number: PHEH2013US026295

PATIENT
  Sex: Female

DRUGS (3)
  1. DICLOFENAC [Suspect]
     Dosage: 100 MG, BID
  2. VOLTAREN [Suspect]
     Dosage: 75 MG, BID
     Route: 048
     Dates: end: 20100405
  3. NEURONTIN [Concomitant]
     Indication: NEURALGIA
     Dosage: UNK UKN, UNK

REACTIONS (2)
  - Arthritis [Unknown]
  - Drug ineffective [Unknown]
